FAERS Safety Report 6612429-1 (Version None)
Quarter: 2010Q1

REPORT INFORMATION
  Report Type: 
  Country: None (occurrence: None)
  Receive Date: 20100303
  Receipt Date: 20100219
  Transmission Date: 20100710
  Serious: Yes (Other)
  Sender: FDA-Public Use
  Company Number: PHHY2010MX10063

PATIENT
  Age: 87 Year
  Sex: Female

DRUGS (1)
  1. CO-DIOVAN [Suspect]
     Indication: HYPERTENSION
     Dosage: 1 TABLET DAILY
     Route: 048

REACTIONS (3)
  - ARTHRITIS [None]
  - DYSPHONIA [None]
  - SPINAL DISORDER [None]
